FAERS Safety Report 6672086-5 (Version None)
Quarter: 2010Q2

REPORT INFORMATION
  Report Type: 
  Country: None (occurrence: None)
  Receive Date: 20100407
  Receipt Date: 20100407
  Transmission Date: 20101027
  Serious: Yes (Hospitalization)
  Sender: FDA-Public Use
  Company Number: None

PATIENT
  Age: 60 Year
  Sex: Female
  Weight: 82.9629 kg

DRUGS (3)
  1. RAD001 EVEROLIMUS [Suspect]
     Indication: BREAST CANCER
     Dosage: RAD001 30 MG WEEKLY
     Dates: start: 20100304, end: 20100331
  2. CISPLATIN [Suspect]
     Dosage: CISPLATIN 46 MG WEEKLY
  3. TAXOL [Suspect]

REACTIONS (8)
  - ASTHENIA [None]
  - DIARRHOEA [None]
  - DIASTOLIC DYSFUNCTION [None]
  - FATIGUE [None]
  - HYPOPHAGIA [None]
  - HYPOVOLAEMIA [None]
  - NAUSEA [None]
  - SYNCOPE [None]
